FAERS Safety Report 5054665-4 (Version None)
Quarter: 2006Q3

REPORT INFORMATION
  Report Type: 
  Country: None (occurrence: None)
  Receive Date: 20060719
  Receipt Date: 20060609
  Transmission Date: 20061208
  Serious: Yes (Death, Life-Threatening)
  Sender: FDA-Public Use
  Company Number: PHBS2006JP08668

PATIENT
  Age: 71 Year
  Sex: Male
  Weight: 60 kg

DRUGS (4)
  1. ALEVIATIN [Suspect]
     Indication: CONVULSION
     Dosage: 250 MG/DAY
     Route: 048
     Dates: start: 20060401, end: 20060530
  2. MAGNESIUM OXIDE [Concomitant]
     Indication: CONSTIPATION
     Dosage: 1.5 G/DAY
     Route: 048
     Dates: start: 20060401, end: 20060530
  3. LAC B [Concomitant]
     Indication: CONSTIPATION
     Dosage: 3 G/DAY
     Route: 048
     Dates: start: 20060401, end: 20060530
  4. TEGRETOL [Suspect]
     Indication: CONVULSION
     Dosage: 300 MG/DAY
     Route: 048
     Dates: start: 20060401, end: 20060530

REACTIONS (19)
  - ASPARTATE AMINOTRANSFERASE INCREASED [None]
  - BLOOD ALBUMIN DECREASED [None]
  - BLOOD LACTATE DEHYDROGENASE INCREASED [None]
  - C-REACTIVE PROTEIN INCREASED [None]
  - CELL MARKER INCREASED [None]
  - CHEST X-RAY ABNORMAL [None]
  - FIBRIN D DIMER INCREASED [None]
  - FIBRIN DEGRADATION PRODUCTS INCREASED [None]
  - GAMMA-GLUTAMYLTRANSFERASE INCREASED [None]
  - HAEMOGLOBIN DECREASED [None]
  - HYPOXIA [None]
  - INTERSTITIAL LUNG DISEASE [None]
  - LYMPHOCYTE COUNT DECREASED [None]
  - NEUTROPHIL COUNT INCREASED [None]
  - PLATELET COUNT DECREASED [None]
  - PNEUMOTHORAX [None]
  - PO2 DECREASED [None]
  - PYREXIA [None]
  - WHITE BLOOD CELL COUNT INCREASED [None]
